FAERS Safety Report 5383723-X (Version None)
Quarter: 2007Q3

REPORT INFORMATION
  Report Type: 
  Country: None (occurrence: None)
  Receive Date: 20070706
  Receipt Date: 20070601
  Transmission Date: 20080115
  Serious: Yes (Other)
  Sender: FDA-Public Use
  Company Number: 2007RL000258

PATIENT
  Age: 64 Year
  Sex: Female
  Weight: 148.7798 kg

DRUGS (7)
  1. RYTHMOL [Suspect]
     Indication: ATRIAL FIBRILLATION
     Dosage: 325 MG; BID; PO
     Route: 048
     Dates: start: 20070401
  2. METOPROLOL SUCCINATE [Suspect]
     Indication: DRUG USE FOR UNKNOWN INDICATION
     Dosage: SEE IMAGE
     Route: 048
     Dates: start: 20070401, end: 20070603
  3. METOPROLOL SUCCINATE [Suspect]
     Indication: DRUG USE FOR UNKNOWN INDICATION
     Dosage: SEE IMAGE
     Route: 048
     Dates: start: 20070604
  4. METFORMIN HCL [Concomitant]
  5. SYNTHROID [Concomitant]
  6. ^ALLERGY INJECTIONS^ [Concomitant]
  7. JANUVIA [Concomitant]

REACTIONS (7)
  - ALLERGENIC DESENSITISATION PROCEDURE [None]
  - ATRIAL FLUTTER [None]
  - DIZZINESS [None]
  - DRY THROAT [None]
  - DYSPNOEA [None]
  - FATIGUE [None]
  - SWELLING FACE [None]
